FAERS Safety Report 7987367-2 (Version None)
Quarter: 2011Q4

REPORT INFORMATION
  Report Type: 
  Country: None (occurrence: None)
  Receive Date: 20111216
  Receipt Date: 20111024
  Transmission Date: 20120403
  Serious: No
  Sender: FDA-Public Use
  Company Number: US-BRISTOL-MYERS SQUIBB COMPANY-16190373

PATIENT
  Age: 65 Year
  Sex: Male
  Weight: 227 kg

DRUGS (4)
  1. DEPAKOTE [Concomitant]
     Indication: AFFECTIVE DISORDER
  2. KLONOPIN [Concomitant]
     Indication: AFFECTIVE DISORDER
  3. ABILIFY [Suspect]
     Indication: CYCLOTHYMIC DISORDER
     Dates: start: 20080901, end: 20110901
  4. LITHIUM CARBONATE [Concomitant]
     Indication: AFFECTIVE DISORDER

REACTIONS (1)
  - TARDIVE DYSKINESIA [None]
